FAERS Safety Report 5707152-1 (Version None)
Quarter: 2008Q2

REPORT INFORMATION
  Report Type: 
  Country: None (occurrence: None)
  Receive Date: 20080414
  Receipt Date: 20080414
  Transmission Date: 20081010
  Serious: No
  Sender: FDA-Public Use
  Company Number: None

PATIENT
  Age: 26 Month
  Sex: Female
  Weight: 11.3399 kg

DRUGS (1)
  1. SINGULAIR [Suspect]
     Indication: ASTHMA PROPHYLAXIS
     Dosage: 4MG CHEWABLE QD PO
     Route: 048
     Dates: start: 20080301, end: 20080331

REACTIONS (5)
  - ABNORMAL BEHAVIOUR [None]
  - MIDDLE INSOMNIA [None]
  - NIGHTMARE [None]
  - SCREAMING [None]
  - SLEEP DISORDER [None]
